FAERS Safety Report 5680900-5 (Version None)
Quarter: 2008Q1

REPORT INFORMATION
  Report Type: 
  Country: None (occurrence: None)
  Receive Date: 20080325
  Receipt Date: 20080318
  Transmission Date: 20080703
  Serious: Yes (Death, Hospitalization, Other)
  Sender: FDA-Public Use
  Company Number: 163-C5013-08010464

PATIENT
  Age: 75 Year
  Sex: Male
  Weight: 180 kg

DRUGS (18)
  1. CC-5013 (LENALIDOMIDE) (25 MILLIGRAM, CAPSULES) [Suspect]
     Indication: NON-HODGKIN'S LYMPHOMA
     Dosage: 25 MG, DAYS 1-21 EVERY 28 DAYS,  ORAL
     Route: 048
     Dates: start: 20071231, end: 20080102
  2. ALLOPURINOL [Concomitant]
  3. COMPAZINE (PROCHLORPERAZINE EDISYLATE) [Concomitant]
  4. TRAZODONE HCL [Concomitant]
  5. OXYCODONE HCL [Concomitant]
  6. LASIX [Concomitant]
  7. VANCOMYCIN [Concomitant]
  8. TEMAZEPAM (TEMAZEPAM) (CAPSULES) [Concomitant]
  9. CALCIUM GLUCONATE [Concomitant]
  10. DOCUSATE SODIUM (DUCUSATE SODIUM) (CAPSULES) [Concomitant]
  11. SODIUM POLYSTYRENE SULFONATE (SODIUM POLYSTYRENE SULFONATE) (SUSPENSIO [Concomitant]
  12. TERAZOSIN HCL [Concomitant]
  13. CITRACAL (CALCIUM CITRATE) [Concomitant]
  14. FLAGYL [Concomitant]
  15. AMBIEN [Concomitant]
  16. MULTIVITAMIN [Concomitant]
  17. ANUSOL (ANUSOL) (CREAM) [Concomitant]
  18. PRILOSEC [Concomitant]

REACTIONS (17)
  - CELLULITIS [None]
  - DIASTOLIC DYSFUNCTION [None]
  - HYPERCALCAEMIA [None]
  - HYPERKALAEMIA [None]
  - HYPOTENSION [None]
  - LEFT VENTRICULAR DYSFUNCTION [None]
  - MEDIASTINAL MASS [None]
  - NON-HODGKIN'S LYMPHOMA [None]
  - PULMONARY HYPERTENSION [None]
  - RENAL FAILURE ACUTE [None]
  - RENAL TUBULAR NECROSIS [None]
  - RESPIRATORY ARREST [None]
  - SEPSIS [None]
  - SINUS TACHYCARDIA [None]
  - TUMOUR LYSIS SYNDROME [None]
  - UNRESPONSIVE TO STIMULI [None]
  - WOUND INFECTION BACTERIAL [None]
